FAERS Safety Report 23696512 (Version 1)
Quarter: 2024Q2

REPORT INFORMATION
  Report Type: Spontaneous
  Country: GB (occurrence: GB)
  Receive Date: 20240402
  Receipt Date: 20240402
  Transmission Date: 20240716
  Serious: Yes (Life-Threatening, Hospitalization, Disabling, Other)
  Sender: FDA-Public Use
  Company Number: GB-CELLTRION INC.-2024GB007636

PATIENT

DRUGS (1)
  1. ADALIMUMAB [Suspect]
     Active Substance: ADALIMUMAB\ISOPROPYL ALCOHOL
     Indication: Crohn^s disease
     Dosage: FIRST DOSE/ADDITIONAL INFO: ROUTE:
     Dates: start: 20231219, end: 20240118

REACTIONS (11)
  - Mitral valve prolapse [Not Recovered/Not Resolved]
  - Hypervolaemia [Recovering/Resolving]
  - Atrial fibrillation [Not Recovered/Not Resolved]
  - Migraine [Not Recovered/Not Resolved]
  - Arrhythmia [Not Recovered/Not Resolved]
  - Cerebrovascular accident [Recovering/Resolving]
  - Dyspnoea [Not Recovered/Not Resolved]
  - Depression [Not Recovered/Not Resolved]
  - Cardiac failure [Unknown]
  - Medication error [Unknown]
  - Fatigue [Unknown]

NARRATIVE: CASE EVENT DATE: 20231221
